FAERS Safety Report 12904506 (Version 1)
Quarter: 2016Q4

REPORT INFORMATION
  Report Type: Report from Study
  Country: MX (occurrence: MX)
  Receive Date: 20161102
  Receipt Date: 20161102
  Transmission Date: 20170207
  Serious: Yes (Other)
  Sender: FDA-Public Use
  Company Number: PHHY2016MX149806

PATIENT
  Sex: Male

DRUGS (1)
  1. TRILEPTAL [Suspect]
     Active Substance: OXCARBAZEPINE
     Indication: SEIZURE
     Dosage: 15 ML (60 ML), QD (FROM 11 YEARS AGO)
     Route: 065

REACTIONS (2)
  - Myoclonic epilepsy [Unknown]
  - Infantile spasms [Unknown]
